FAERS Safety Report 24948430 (Version 2)
Quarter: 2025Q1

REPORT INFORMATION
  Report Type: Spontaneous
  Country: GB (occurrence: GB)
  Receive Date: 20250210
  Receipt Date: 20250228
  Transmission Date: 20250409
  Serious: Yes (Hospitalization)
  Sender: ROCHE
  Company Number: GB-ROCHE-10000198467

PATIENT
  Age: 65 Year
  Sex: Female

DRUGS (4)
  1. ATEZOLIZUMAB [Suspect]
     Active Substance: ATEZOLIZUMAB
     Indication: Small cell lung cancer
     Route: 003
     Dates: start: 20240709
  2. RAMIPRIL [Concomitant]
     Active Substance: RAMIPRIL
  3. CARVEDILOL [Concomitant]
     Active Substance: CARVEDILOL
  4. FLUOXETINE [Concomitant]
     Active Substance: FLUOXETINE HYDROCHLORIDE

REACTIONS (4)
  - Presyncope [Recovered/Resolved]
  - Fear of injection [Recovered/Resolved]
  - Viral rash [Recovered/Resolved]
  - Blood pressure decreased [Unknown]

NARRATIVE: CASE EVENT DATE: 20240709
